APPROVED DRUG PRODUCT: ESOMEPRAZOLE MAGNESIUM
Active Ingredient: ESOMEPRAZOLE MAGNESIUM
Strength: EQ 40MG BASE/PACKET
Dosage Form/Route: FOR SUSPENSION, DELAYED RELEASE;ORAL
Application: A218948 | Product #003 | TE Code: AB
Applicant: AUROBINDO PHARMA LTD
Approved: Apr 15, 2025 | RLD: No | RS: No | Type: RX